FAERS Safety Report 9292318 (Version 1)
Quarter: 2013Q2

REPORT INFORMATION
  Report Type: Report from Study
  Country: NL (occurrence: NL)
  Receive Date: 20130516
  Receipt Date: 20130516
  Transmission Date: 20140414
  Serious: Yes (Other)
  Sender: FDA-Public Use
  Company Number: PHHY2013NL048449

PATIENT
  Sex: Male

DRUGS (3)
  1. ZOMETA [Suspect]
     Indication: PROSTATE CANCER METASTATIC
     Dosage: 4MG/ 100ML ONCE EVERY 4 WEEKS
     Route: 042
  2. ZOMETA [Suspect]
     Dosage: 4MG/ 100ML ONCE EVERY 4 WEEKS
     Route: 042
     Dates: start: 20130219
  3. ZOMETA [Suspect]
     Dosage: 4MG/ 100ML ONCE EVERY 4 WEEKS
     Route: 042
     Dates: start: 20130416, end: 20130416

REACTIONS (1)
  - Terminal state [Unknown]
